FAERS Safety Report 20702456 (Version 3)
Quarter: 2023Q1

REPORT INFORMATION
  Report Type: Spontaneous
  Country: US (occurrence: US)
  Receive Date: 20220412
  Receipt Date: 20230221
  Transmission Date: 20230418
  Serious: No
  Sender: FDA-Public Use
  Company Number: US-PFIZER INC-202101276023

PATIENT
  Age: 57 Year
  Sex: Male
  Weight: 72.562 kg

DRUGS (4)
  1. INLYTA [Suspect]
     Active Substance: AXITINIB
     Indication: Renal cell carcinoma
     Dosage: 5 MG, 2X/DAY (EVERY 12 HOURS)
     Route: 048
     Dates: start: 20210823
  2. INLYTA [Suspect]
     Active Substance: AXITINIB
     Dosage: 5 MG, 2X/DAY
     Route: 048
     Dates: start: 20210924
  3. INLYTA [Suspect]
     Active Substance: AXITINIB
     Dosage: 1 DF, ALTERNATE DAY (ONE INLYTA EVERY OTHER DAY AND THEN TWO EVERY OTHER DAY)
  4. INLYTA [Suspect]
     Active Substance: AXITINIB
     Dosage: 2 DF, ALTERNATE DAY (ONE INLYTA EVERY OTHER DAY AND THEN TWO EVERY OTHER DAY)

REACTIONS (2)
  - Pancreatic disorder [Unknown]
  - Blood pressure increased [Recovering/Resolving]

NARRATIVE: CASE EVENT DATE: 20210101
